FAERS Safety Report 4856071-1 (Version None)
Quarter: 2005Q4

REPORT INFORMATION
  Report Type: 
  Country: None (occurrence: None)
  Receive Date: 20051216
  Receipt Date: 20051207
  Transmission Date: 20060501
  Serious: Yes (Life-Threatening)
  Sender: FDA-Public Use
  Company Number: US-AVENTIS-200520201US

PATIENT

DRUGS (1)
  1. KETEK [Suspect]
     Dosage: DOSE: UNKNOWN
     Route: 048

REACTIONS (1)
  - HEPATIC FAILURE [None]
